FAERS Safety Report 16214580 (Version 2)
Quarter: 2019Q2

REPORT INFORMATION
  Report Type: Report from Study
  Country: CO (occurrence: CO)
  Receive Date: 20190418
  Receipt Date: 20190426
  Transmission Date: 20190711
  Serious: Yes (Other)
  Sender: FDA-Public Use
  Company Number: CO-SHIRE-CO201912680

PATIENT

DRUGS (1)
  1. ELAPRASE [Suspect]
     Active Substance: IDURSULFASE
     Indication: MUCOPOLYSACCHARIDOSIS II
     Dosage: 8 MILLIGRAM, 1X/WEEK
     Route: 042
     Dates: start: 20190212

REACTIONS (7)
  - Oedema [Unknown]
  - Infection [Unknown]
  - Ear haemorrhage [Unknown]
  - Ear pain [Unknown]
  - Skin exfoliation [Unknown]
  - Pyrexia [Unknown]
  - Rash papular [Unknown]

NARRATIVE: CASE EVENT DATE: 201904
